FAERS Safety Report 20831451 (Version 1)
Quarter: 2022Q2

REPORT INFORMATION
  Report Type: Report from Study
  Country: CO (occurrence: CO)
  Receive Date: 20220516
  Receipt Date: 20220516
  Transmission Date: 20220721
  Serious: Yes (Death, Life-Threatening)
  Sender: FDA-Public Use
  Company Number: CO-ABBVIE-22K-036-4395364-00

PATIENT

DRUGS (1)
  1. SURVANTA [Suspect]
     Active Substance: BERACTANT
     Indication: Product used for unknown indication
     Route: 039

REACTIONS (2)
  - Death [Fatal]
  - Pulmonary haemorrhage [Not Recovered/Not Resolved]
